FAERS Safety Report 12787223 (Version 1)
Quarter: 2016Q3

REPORT INFORMATION
  Report Type: Spontaneous
  Country: FR (occurrence: FR)
  Receive Date: 20160927
  Receipt Date: 20160927
  Transmission Date: 20161109
  Serious: Yes (Hospitalization, Other)
  Sender: FDA-Public Use
  Company Number: FR-BAXTER-2016BAX048170

PATIENT
  Age: 64 Year
  Sex: Male

DRUGS (21)
  1. VINCRISTIN [Suspect]
     Active Substance: VINCRISTINE
     Indication: B-CELL UNCLASSIFIABLE LYMPHOMA HIGH GRADE
     Dosage: R-CHOP PROTOCOL
     Route: 065
  2. RITUXIMAB [Suspect]
     Active Substance: RITUXIMAB
     Dosage: R-CHOP
     Route: 065
  3. PREDNISONE. [Suspect]
     Active Substance: PREDNISONE
     Indication: B-CELL UNCLASSIFIABLE LYMPHOMA HIGH GRADE
     Dosage: R-CHOP PROTOCOL
     Route: 065
  4. DOXORUBICIN [Suspect]
     Active Substance: DOXORUBICIN
     Indication: B-CELL UNCLASSIFIABLE LYMPHOMA HIGH GRADE
     Dosage: R-CHOP PROTOCOL
     Route: 065
  5. DEXAMETHASONE. [Suspect]
     Active Substance: DEXAMETHASONE
     Indication: DISEASE PROGRESSION
     Dosage: DHAP PROTOCOL, 1ST COURSE
     Route: 065
     Dates: start: 20160808
  6. HYDROCORTISONE. [Concomitant]
     Active Substance: HYDROCORTISONE
     Indication: PRODUCT USED FOR UNKNOWN INDICATION
     Dosage: LONG TERM
     Route: 065
  7. CISPLATIN. [Suspect]
     Active Substance: CISPLATIN
     Indication: DISEASE PROGRESSION
     Dosage: DHAP PROTOCOL, 1ST COURSE
     Route: 065
     Dates: start: 20160808
  8. INNOHEP [Concomitant]
     Active Substance: TINZAPARIN SODIUM
     Indication: PRODUCT USED FOR UNKNOWN INDICATION
     Dosage: LONG TERM
     Route: 065
  9. OROCAL [Concomitant]
     Active Substance: CALCIUM CARBONATE
     Indication: PRODUCT USED FOR UNKNOWN INDICATION
     Dosage: LONG TERM
     Route: 065
  10. ZELITREX [Concomitant]
     Active Substance: VALACYCLOVIR HYDROCHLORIDE
     Indication: PRODUCT USED FOR UNKNOWN INDICATION
     Dosage: LONG TERM
     Route: 065
  11. ENDOXAN 1000 MG, POUDRE POUR SOLUTIONINJECTABLE [Suspect]
     Active Substance: CYCLOPHOSPHAMIDE
     Indication: B-CELL UNCLASSIFIABLE LYMPHOMA HIGH GRADE
     Dosage: R-CHOP PROTOCOL
     Route: 065
  12. ETOPOSIDE. [Suspect]
     Active Substance: ETOPOSIDE
     Indication: DISEASE PROGRESSION
     Dosage: 1ST COURSE
     Route: 042
     Dates: start: 20160830, end: 20160830
  13. CISPLATIN. [Suspect]
     Active Substance: CISPLATIN
     Indication: B-CELL LYMPHOMA
     Dosage: 3 COURSES OF R-CEP PROTOCOL
     Route: 065
     Dates: start: 20160205, end: 20160318
  14. PREDNISONE. [Suspect]
     Active Substance: PREDNISONE
     Indication: B-CELL LYMPHOMA
     Dosage: 3 COURSES OF R-CEP PROTOCOL
     Route: 065
     Dates: start: 20160205, end: 20160318
  15. HOLOXAN 2000 MG, POUDRE POUR USAGE PARENT?RAL [Suspect]
     Active Substance: IFOSFAMIDE
     Indication: DISEASE PROGRESSION
     Dosage: 1ST COURSE
     Route: 042
     Dates: start: 20160830, end: 20160830
  16. ACTISKENAN [Suspect]
     Active Substance: MORPHINE SULFATE
     Indication: PRODUCT USED FOR UNKNOWN INDICATION
     Dosage: 50 MG IN TOTAL
     Route: 048
     Dates: start: 20160830, end: 20160831
  17. SKENAN [Suspect]
     Active Substance: MORPHINE SULFATE
     Indication: PRODUCT USED FOR UNKNOWN INDICATION
     Route: 048
     Dates: start: 20160830, end: 20160831
  18. CYTARABINE. [Suspect]
     Active Substance: CYTARABINE
     Indication: DISEASE PROGRESSION
     Dosage: DHAP PROTOCOL, 1ST COURSE, HIGH DOSE
     Route: 065
     Dates: start: 20160808
  19. CELLTOP 100 MG/5 ML, SOLUTION INJECTABLE POUR PERFUSION [Suspect]
     Active Substance: ETOPOSIDE
     Indication: B-CELL LYMPHOMA
     Dosage: 3 COURSES OF R-CEP PROTOCOL
     Route: 065
     Dates: start: 20160205, end: 20160318
  20. CARBOPLATIN. [Suspect]
     Active Substance: CARBOPLATIN
     Indication: DISEASE PROGRESSION
     Dosage: 1ST COURSE
     Route: 042
     Dates: start: 20160830, end: 20160830
  21. RITUXIMAB [Suspect]
     Active Substance: RITUXIMAB
     Indication: B-CELL LYMPHOMA
     Dosage: 3 COURSES OF R-CEP PROTOCOL
     Route: 065
     Dates: start: 20160205, end: 20160318

REACTIONS (3)
  - Encephalopathy [Recovered/Resolved]
  - Disease progression [Unknown]
  - Myoclonus [Recovered/Resolved]

NARRATIVE: CASE EVENT DATE: 20160901
